FAERS Safety Report 19580426 (Version 4)
Quarter: 2021Q3

REPORT INFORMATION
  Report Type: Report from Study
  Country: CN (occurrence: CN)
  Receive Date: 20210720
  Receipt Date: 20210827
  Transmission Date: 20211014
  Serious: Yes (Hospitalization)
  Sender: FDA-Public Use
  Company Number: CN-SA-2021SA229792

PATIENT
  Age: 49 Year
  Sex: Female
  Weight: 59.8 kg

DRUGS (13)
  1. ANBENITAMAB. [Suspect]
     Active Substance: ANBENITAMAB
     Indication: INVASIVE BREAST CARCINOMA
     Dosage: 1818 MG, Q3W
     Route: 042
     Dates: start: 20210426, end: 20210426
  2. COMPOUND GLYCYRRHIZIN [CYSTEINE HYDROCHLORIDE;GLYCINE;GLYCYRRHIZIC ACI [Concomitant]
     Indication: LIVER INJURY
     Dosage: 40 ML, QD
     Route: 041
     Dates: start: 20210629, end: 20210629
  3. DOCETAXEL. [Suspect]
     Active Substance: DOCETAXEL
     Dosage: 124.5 MG, Q3W
     Route: 041
     Dates: start: 20210428, end: 20210428
  4. ONDANSETRON HYDROCHLORIDE. [Concomitant]
     Active Substance: ONDANSETRON HYDROCHLORIDE
     Indication: PROPHYLAXIS OF NAUSEA AND VOMITING
     Dosage: 8 MG, QD
     Route: 042
     Dates: start: 20210629, end: 20210629
  5. DEXAMETHASONE SODIUM PHOSPHATE. [Concomitant]
     Active Substance: DEXAMETHASONE SODIUM PHOSPHATE
     Indication: ALLERGY PROPHYLAXIS
     Dosage: 20 MG, QD
     Route: 041
     Dates: start: 20210629, end: 20210629
  6. DOCETAXEL. [Suspect]
     Active Substance: DOCETAXEL
     Indication: INVASIVE BREAST CARCINOMA
     Dosage: 124.5 MG, Q3W
     Route: 041
     Dates: start: 20210427, end: 20210427
  7. DEXAMETASONA [DEXAMETHASONE ACETATE] [Concomitant]
     Active Substance: DEXAMETHASONE ACETATE
     Indication: ALLERGY PROPHYLAXIS
     Dosage: 9 MG, BID
     Route: 048
     Dates: start: 20210628, end: 20210630
  8. MONTMORILLONITE [Concomitant]
     Active Substance: MONTMORILLONITE
     Indication: DIARRHOEA
     Dosage: 3 G, TID
     Route: 048
     Dates: start: 20210628, end: 20210712
  9. OMEPRAZOLE SODIUM [Concomitant]
     Active Substance: OMEPRAZOLE SODIUM
     Indication: GASTRITIS EROSIVE
     Dosage: 40 MG, QD
     Route: 041
     Dates: start: 20210629, end: 20210629
  10. TROPISETRON HYDROCHLORIDE [Concomitant]
     Active Substance: TROPISETRON HYDROCHLORIDE
     Indication: PROPHYLAXIS OF NAUSEA AND VOMITING
     Dosage: 5 MG, QD
     Route: 042
     Dates: start: 20210628, end: 20210628
  11. POLYENE PHOSPHATIDYLCHOLINE [Concomitant]
     Active Substance: PHOSPHOLIPID
     Indication: LIVER INJURY
     Dosage: 0.228 G, TID
     Route: 048
     Dates: start: 20210628, end: 20210713
  12. OMEPRAZOLE. [Concomitant]
     Active Substance: OMEPRAZOLE
     Indication: GASTRITIS EROSIVE
     Dosage: 20 MG, QD
     Route: 048
     Dates: start: 20210628, end: 20210705
  13. DOCETAXEL. [Suspect]
     Active Substance: DOCETAXEL
     Dosage: 124.5 MG, Q3W
     Route: 041
     Dates: start: 20210720, end: 20210720

REACTIONS (6)
  - Tonsillitis [Recovered/Resolved]
  - Abdominal pain upper [Recovered/Resolved]
  - Oropharyngeal pain [Unknown]
  - Aphonia [Unknown]
  - Sensation of foreign body [Unknown]
  - Diarrhoea [Recovered/Resolved]

NARRATIVE: CASE EVENT DATE: 20210501
